FAERS Safety Report 4962970-2 (Version None)
Quarter: 2006Q1

REPORT INFORMATION
  Report Type: 
  Country: None (occurrence: None)
  Receive Date: 20060331
  Receipt Date: 20060320
  Transmission Date: 20060701
  Serious: Yes (Other)
  Sender: FDA-Public Use
  Company Number: S06-GER-01297-01

PATIENT
  Age: 76 Year
  Sex: Female
  Weight: 86 kg

DRUGS (9)
  1. CITALOPRAM HYDROBROMIDE [Suspect]
     Indication: DEPRESSION
     Dosage: 10 MG QD PO
     Route: 048
     Dates: start: 20051221, end: 20051229
  2. MIRTAZAPINE [Concomitant]
  3. FUROSEMIDE [Concomitant]
  4. BIFITERAL ^PHILIPS^ (LACTULOSE) [Concomitant]
  5. ACETYLSALICYLIC ACID SRT [Concomitant]
  6. BELOC-ZOC MITE (METOPROLOL SUCCINATE) [Concomitant]
  7. ENALAPRIL MALEATE [Concomitant]
  8. ALLOPURINOL [Concomitant]
  9. TOREM (TORASEMIDE) [Concomitant]

REACTIONS (2)
  - AGRANULOCYTOSIS [None]
  - WHITE BLOOD CELL COUNT DECREASED [None]
